FAERS Safety Report 9338299 (Version 1)
Quarter: 2013Q2

REPORT INFORMATION
  Report Type: Report from Study
  Country: NL (occurrence: NL)
  Receive Date: 20130610
  Receipt Date: 20130610
  Transmission Date: 20140414
  Serious: Yes (Hospitalization)
  Sender: FDA-Public Use
  Company Number: NL-ROCHE-1132544

PATIENT
  Age: 63 Year
  Sex: Female

DRUGS (10)
  1. BEVACIZUMAB [Suspect]
     Indication: BREAST CANCER METASTATIC
     Route: 042
     Dates: start: 20120831, end: 20120831
  2. PACLITAXEL [Suspect]
     Indication: BREAST CANCER METASTATIC
     Route: 042
     Dates: start: 20120831, end: 20120831
  3. METOCLOPRAMIDE [Concomitant]
  4. MACROGOL [Concomitant]
  5. OMEPRAZOL [Concomitant]
  6. LOSARTAN [Concomitant]
     Dosage: 50/125,
     Route: 065
  7. EZETIMIBA [Concomitant]
     Route: 065
  8. OXYCODON HCL [Concomitant]
     Route: 065
  9. CALCIUM CARBONATE [Concomitant]
     Dosage: 1.25/400
     Route: 065
  10. NAPROXEN [Concomitant]
     Route: 065

REACTIONS (1)
  - Urinary retention [Recovered/Resolved]
